FAERS Safety Report 19494237 (Version 11)
Quarter: 2025Q1

REPORT INFORMATION
  Report Type: Spontaneous
  Country: US (occurrence: US)
  Receive Date: 20210705
  Receipt Date: 20250130
  Transmission Date: 20250408
  Serious: Yes (Other)
  Sender: PFIZER
  Company Number: US-PFIZER INC-2021374609

PATIENT
  Age: 75 Year
  Sex: Female
  Weight: 51.247 kg

DRUGS (4)
  1. IBRANCE [Suspect]
     Active Substance: PALBOCICLIB
     Indication: Breast cancer metastatic
     Dates: start: 20180505, end: 202202
  2. IBRANCE [Suspect]
     Active Substance: PALBOCICLIB
     Dates: end: 202204
  3. MODERNA COVID-19 VACCINE [Suspect]
     Active Substance: ELASOMERAN
     Indication: COVID-19 immunisation
  4. FASLODEX [Concomitant]
     Active Substance: FULVESTRANT
     Indication: Breast cancer metastatic

REACTIONS (6)
  - Diverticulitis [Unknown]
  - Gastrointestinal disorder [Unknown]
  - Fatigue [Unknown]
  - COVID-19 [Unknown]
  - Neoplasm progression [Unknown]
  - Intentional product misuse [Unknown]

NARRATIVE: CASE EVENT DATE: 20200101
